FAERS Safety Report 20733042 (Version 1)
Quarter: 2022Q2

REPORT INFORMATION
  Report Type: Other
  Country: US (occurrence: None)
  Receive Date: 20220421
  Receipt Date: 20220421
  Transmission Date: 20220721
  Serious: Yes (Other)
  Sender: FDA-Public Use
  Company Number: US-ROCHE-3074389

PATIENT
  Sex: Female
  Weight: 80.630 kg

DRUGS (5)
  1. OCREVUS [Suspect]
     Active Substance: OCRELIZUMAB
     Indication: Relapsing multiple sclerosis
     Dosage: 300 MG/10 ML AS DIRECTED
     Route: 042
  2. ALPRAZOLAM [Concomitant]
     Active Substance: ALPRAZOLAM
  3. HYDROCODONE [Concomitant]
     Active Substance: HYDROCODONE
  4. MODAFINIL [Concomitant]
     Active Substance: MODAFINIL
  5. GABAPENTIN [Concomitant]
     Active Substance: GABAPENTIN

REACTIONS (5)
  - COVID-19 [Unknown]
  - Sleep disorder [Unknown]
  - Dysuria [Unknown]
  - Myalgia [Unknown]
  - Multiple sclerosis relapse [Unknown]
